FAERS Safety Report 6651995-7 (Version None)
Quarter: 2010Q1

REPORT INFORMATION
  Report Type: 
  Country: None (occurrence: None)
  Receive Date: 20100325
  Receipt Date: 20090227
  Transmission Date: 20100710
  Serious: Yes (Hospitalization)
  Sender: FDA-Public Use
  Company Number: US-SANOFI-AVENTIS-F01200701686

PATIENT
  Age: 67 Year
  Sex: Male
  Weight: 53.6 kg

DRUGS (8)
  1. OXALIPLATIN [Suspect]
     Dosage: UNIT DOSE: 100 MG/M2
     Route: 042
     Dates: start: 20071119, end: 20071119
  2. DOCETAXEL [Suspect]
     Dosage: UNIT DOSE: 70 MG/M2
     Route: 042
     Dates: start: 20071119, end: 20071119
  3. BEVACIZUMAB [Suspect]
     Dosage: UNIT DOSE: 893 MG
     Route: 042
     Dates: start: 20071119, end: 20071119
  4. OXYCONTIN [Concomitant]
     Route: 065
  5. HYDROCODONE [Concomitant]
     Route: 065
  6. CELEBREX [Concomitant]
     Route: 065
  7. COMPAZINE [Concomitant]
     Route: 065
  8. XOPENEX [Concomitant]
     Route: 065

REACTIONS (1)
  - APPENDICITIS [None]
